FAERS Safety Report 11565065 (Version 1)
Quarter: 2015Q3

REPORT INFORMATION
  Report Type: Spontaneous
  Country: US (occurrence: US)
  Receive Date: 20150928
  Receipt Date: 20150928
  Transmission Date: 20151125
  Serious: Yes (Other)
  Sender: FDA-Public Use
  Company Number: US-GILEAD-2015-0173867

PATIENT
  Sex: Female

DRUGS (3)
  1. RIBASPHERE [Suspect]
     Active Substance: RIBAVIRIN
     Dosage: 200 MG, TID
     Route: 065
     Dates: start: 20150211, end: 20150225
  2. SOVALDI [Suspect]
     Active Substance: SOFOSBUVIR
     Indication: HEPATITIS C
     Dosage: 400 MG, UNK
     Route: 065
     Dates: start: 20141220, end: 20150225
  3. RIBASPHERE [Suspect]
     Active Substance: RIBAVIRIN
     Indication: HEPATITIS C
     Dosage: 1000 MG, QD
     Route: 065
     Dates: start: 20141220, end: 20150120

REACTIONS (4)
  - Haemoglobin decreased [Unknown]
  - Depressed mood [Unknown]
  - Drug ineffective [Unknown]
  - Asthenia [Unknown]

NARRATIVE: CASE EVENT DATE: 20150120
